FAERS Safety Report 19750185 (Version 1)
Quarter: 2021Q3

REPORT INFORMATION
  Report Type: Spontaneous
  Country: US (occurrence: US)
  Receive Date: 20210826
  Receipt Date: 20210826
  Transmission Date: 20211014
  Serious: No
  Sender: FDA-Public Use
  Company Number: US-PFIZER INC-2021863069

PATIENT
  Age: 80 Year
  Sex: Male

DRUGS (1)
  1. MYLOTARG [Suspect]
     Active Substance: GEMTUZUMAB OZOGAMICIN
     Dosage: UNK
     Dates: start: 20210525

REACTIONS (3)
  - White blood cell count increased [Unknown]
  - Platelet count increased [Unknown]
  - Red blood cell count increased [Unknown]
